FAERS Safety Report 7450945-3 (Version None)
Quarter: 2011Q2

REPORT INFORMATION
  Report Type: 
  Country: None (occurrence: None)
  Receive Date: 20110502
  Receipt Date: 20110425
  Transmission Date: 20111010
  Serious: Yes (Death, Other)
  Sender: FDA-Public Use
  Company Number: US-ROCHE-719256

PATIENT
  Sex: Male

DRUGS (1)
  1. ACCUTANE [Suspect]
     Dosage: 2 TABLETS ON EVEN DAYS AND 1 TABLET ON ODD DAYS.80/40
     Route: 048
     Dates: start: 19971209, end: 19980430

REACTIONS (25)
  - TACHYCARDIA [None]
  - HAEMATOCRIT DECREASED [None]
  - DEEP VEIN THROMBOSIS [None]
  - INCISION SITE HAEMORRHAGE [None]
  - MYOCARDIAL INFARCTION [None]
  - DEPRESSED MOOD [None]
  - RENAL FAILURE CHRONIC [None]
  - THROMBOPHLEBITIS SUPERFICIAL [None]
  - INFLAMMATORY BOWEL DISEASE [None]
  - COLITIS ULCERATIVE [None]
  - PNEUMONIA [None]
  - STRESS [None]
  - POST THROMBOTIC SYNDROME [None]
  - CARDIAC FAILURE CONGESTIVE [None]
  - MALNUTRITION [None]
  - ANXIETY [None]
  - DEPERSONALISATION [None]
  - MYOCARDITIS [None]
  - CLOSTRIDIUM DIFFICILE COLITIS [None]
  - HYPERCOAGULATION [None]
  - INSOMNIA [None]
  - FEELING OF DESPAIR [None]
  - WEIGHT DECREASED [None]
  - SLEEP DISORDER [None]
  - HYPOXIA [None]
